FAERS Safety Report 14846927 (Version 2)
Quarter: 2018Q2

REPORT INFORMATION
  Report Type: Spontaneous
  Country: SK (occurrence: SK)
  Receive Date: 20180504
  Receipt Date: 20180531
  Transmission Date: 20180711
  Serious: Yes (Hospitalization, Other)
  Sender: FDA-Public Use
  Company Number: SK-TEVA-2018-SK-889658

PATIENT
  Age: 4 Year
  Sex: Male
  Weight: 12.5 kg

DRUGS (7)
  1. PENICILLINE [Concomitant]
     Active Substance: PENICILLIN
  2. MIDAZOLAM [Interacting]
     Active Substance: MIDAZOLAM HYDROCHLORIDE
     Indication: MUSCLE SPASMS
     Route: 065
  3. DIAZEPAM. [Interacting]
     Active Substance: DIAZEPAM
     Indication: MUSCLE SPASMS
     Route: 065
  4. CLINDAMYCIN. [Concomitant]
     Active Substance: CLINDAMYCIN
  5. TRAMADOL. [Suspect]
     Active Substance: TRAMADOL
     Indication: MUSCLE SPASMS
     Route: 065
  6. HUMAN ANTITETANUS IMMUNOGLOBULINE 3000 IU [Concomitant]
     Route: 030
  7. METAMIZOL [Interacting]
     Active Substance: METAMIZOLE SODIUM
     Indication: MUSCLE SPASMS
     Route: 065

REACTIONS (2)
  - Drug interaction [Unknown]
  - Hypoventilation [Recovered/Resolved]
